FAERS Safety Report 4623449-0 (Version None)
Quarter: 2005Q1

REPORT INFORMATION
  Report Type: 
  Country: None (occurrence: None)
  Receive Date: 20050330
  Receipt Date: 20010824
  Transmission Date: 20050727
  Serious: Yes (Death, Hospitalization, Other)
  Sender: FDA-Public Use
  Company Number: US-AMGEN-01081348

PATIENT
  Sex: Male
  Weight: 88 kg

DRUGS (13)
  1. ENBREL [Suspect]
     Indication: PSORIATIC ARTHROPATHY
     Route: 058
     Dates: start: 20000301
  2. ENBREL [Suspect]
  3. FOLIC ACID [Concomitant]
  4. DIGOXIN [Concomitant]
  5. ATENOLOL [Concomitant]
  6. WARFARIN SODIUM [Concomitant]
  7. PREDNISONE [Concomitant]
  8. ZOLPIDEM [Concomitant]
  9. ASPIRIN [Concomitant]
  10. VITAMIN C [Concomitant]
  11. LORAZEPAM [Concomitant]
  12. CELECOXIB [Concomitant]
  13. CARDURA [Concomitant]

REACTIONS (12)
  - ASTHENIA [None]
  - ATRIAL FIBRILLATION [None]
  - CEREBROVASCULAR ACCIDENT [None]
  - CONSTIPATION [None]
  - DEHYDRATION [None]
  - MYCOSIS FUNGOIDES [None]
  - NEUROPATHY [None]
  - OBSTRUCTIVE UROPATHY [None]
  - POLYNEUROPATHY [None]
  - RASH [None]
  - SWELLING FACE [None]
  - WEIGHT INCREASED [None]
